FAERS Safety Report 22626012 (Version 1)
Quarter: 2023Q2

REPORT INFORMATION
  Report Type: Spontaneous
  Country: US (occurrence: None)
  Receive Date: 20230620
  Receipt Date: 20230620
  Transmission Date: 20230722
  Serious: No
  Sender: FDA-Public Use
  Company Number: None

PATIENT
  Sex: Female
  Weight: 85 kg

DRUGS (7)
  1. INLYTA [Suspect]
     Active Substance: AXITINIB
     Indication: Renal cancer
     Dosage: FREQUENCY : TWICE A DAY;?
     Route: 048
     Dates: start: 20230505
  2. CELEXA [Concomitant]
     Active Substance: CITALOPRAM HYDROBROMIDE
  3. METHOTREXATE [Concomitant]
     Active Substance: METHOTREXATE
  4. FOLIC ACID [Concomitant]
     Active Substance: FOLIC ACID
  5. LEFLUNOMIDE [Concomitant]
     Active Substance: LEFLUNOMIDE
  6. SULFASALAZINE [Concomitant]
     Active Substance: SULFASALAZINE
  7. WELLBUTRIN [Concomitant]
     Active Substance: BUPROPION HYDROCHLORIDE

REACTIONS (4)
  - White blood cell count decreased [None]
  - Hepatic function abnormal [None]
  - Faeces soft [None]
  - Headache [None]
